FAERS Safety Report 5282814-1 (Version None)
Quarter: 2007Q1

REPORT INFORMATION
  Report Type: 
  Country: None (occurrence: None)
  Receive Date: 20070329
  Receipt Date: 20070329
  Transmission Date: 20070707
  Serious: Yes (Hospitalization, Disabling, Congenital Anomaly)
  Sender: FDA-Public Use
  Company Number: None

PATIENT
  Sex: Male
  Weight: 3.1752 kg

DRUGS (2)
  1. PAXIL [Suspect]
     Indication: ANXIETY
     Dosage: 20 MGS ONE DAILY PO
     Route: 048
     Dates: start: 20010520, end: 20070327
  2. PAXIL [Suspect]
     Indication: DEPRESSION
     Dosage: 20 MGS ONE DAILY PO
     Route: 048
     Dates: start: 20010520, end: 20070327

REACTIONS (2)
  - ANAL ATRESIA [None]
  - DRUG EXPOSURE DURING PREGNANCY [None]
